FAERS Safety Report 5166686-1 (Version None)
Quarter: 2006Q4

REPORT INFORMATION
  Report Type: 
  Country: None (occurrence: None)
  Receive Date: 20061207
  Receipt Date: 20061124
  Transmission Date: 20070319
  Serious: Yes (Life-Threatening, Other)
  Sender: FDA-Public Use
  Company Number: AU-AVENTIS-200622314GDDC

PATIENT
  Sex: Male

DRUGS (6)
  1. LANTUS [Suspect]
     Route: 058
  2. AUTOPEN INSULIN INJECTION PEN [Suspect]
  3. HUMALOG [Suspect]
     Dosage: FREQUENCY: BEFORE MEALS
     Route: 058
  4. NOVORAPID [Concomitant]
  5. HUMA PEN LUXURA [Concomitant]
  6. FEXI PEN [Concomitant]

REACTIONS (6)
  - ACCIDENTAL EXPOSURE [None]
  - CONVULSION [None]
  - HYPOGLYCAEMIA [None]
  - PHARMACEUTICAL PRODUCT COMPLAINT [None]
  - PNEUMONIA ASPIRATION [None]
  - WRONG DRUG ADMINISTERED [None]
